FAERS Safety Report 21215744 (Version 1)
Quarter: 2022Q3

REPORT INFORMATION
  Report Type: Spontaneous
  Country: FR (occurrence: FR)
  Receive Date: 20220816
  Receipt Date: 20220816
  Transmission Date: 20221027
  Serious: Yes (Other)
  Sender: FDA-Public Use
  Company Number: FR-AFSSAPS-NY20222327

PATIENT
  Age: 30 Year
  Sex: Male

DRUGS (2)
  1. DORZOLAMIDE\TIMOLOL [Suspect]
     Active Substance: DORZOLAMIDE\TIMOLOL
     Indication: Glaucoma
     Dosage: 1 DOSAGE FORM, EVERY OTHER DAY ?IL GAUCHE(LEFT EYE)
     Route: 047
     Dates: start: 20220722, end: 20220801
  2. LATANOPROST [Concomitant]
     Active Substance: LATANOPROST
     Indication: Glaucoma
     Dosage: ?IL DROIT ET GAUCHE(RIGHT AND LEFT EYE)
     Route: 065
     Dates: start: 20220722

REACTIONS (1)
  - Eye pain [Not Recovered/Not Resolved]

NARRATIVE: CASE EVENT DATE: 20220729
